FAERS Safety Report 24623514 (Version 1)
Quarter: 2024Q4

REPORT INFORMATION
  Report Type: Spontaneous
  Country: ES (occurrence: ES)
  Receive Date: 20241115
  Receipt Date: 20241115
  Transmission Date: 20250115
  Serious: Yes (Other)
  Sender: RANBAXY
  Company Number: ES-SUN PHARMACEUTICAL INDUSTRIES LTD-2024RR-478113

PATIENT
  Age: 74 Year
  Sex: Male

DRUGS (3)
  1. OXALIPLATIN [Suspect]
     Active Substance: OXALIPLATIN
     Indication: Colon neoplasm
     Dosage: UNK
     Route: 065
     Dates: start: 202010
  2. LEUCOVORIN CALCIUM [Suspect]
     Active Substance: LEUCOVORIN CALCIUM
     Indication: Colon neoplasm
     Dosage: UNK
     Route: 065
     Dates: start: 202010
  3. FLUOROURACIL [Suspect]
     Active Substance: FLUOROURACIL
     Indication: Colon neoplasm
     Dosage: UNK
     Route: 065
     Dates: start: 202010

REACTIONS (3)
  - Sepsis [Recovered/Resolved]
  - Neutropenic colitis [Recovered/Resolved]
  - Pulmonary embolism [Recovered/Resolved]
